FAERS Safety Report 6076400-3 (Version None)
Quarter: 2009Q1

REPORT INFORMATION
  Report Type: 
  Country: None (occurrence: None)
  Receive Date: 20090209
  Receipt Date: 20090122
  Transmission Date: 20090719
  Serious: Yes (Life-Threatening, Hospitalization, Other)
  Sender: FDA-Public Use
  Company Number: 2009S1001259

PATIENT
  Sex: Female

DRUGS (7)
  1. AMOXICILLIN [Suspect]
     Indication: HELICOBACTER INFECTION
     Dosage: 500 MG;ONCE ORAL
     Route: 048
     Dates: start: 20081121, end: 20081124
  2. AMOXICILLIN [Suspect]
     Indication: HELICOBACTER INFECTION
     Dosage: 500 MG;TWICE A DAY ORAL
     Route: 048
     Dates: start: 20081021, end: 20081124
  3. LANSOPRAZOLE [Suspect]
     Indication: ABDOMINAL PAIN
     Dosage: 30 MG;DAILY
     Dates: start: 20081117, end: 20081124
  4. LANSOPRAZOLE [Suspect]
     Indication: HELICOBACTER INFECTION
     Dosage: 30 MG;DAILY
     Dates: start: 20081117, end: 20081124
  5. BUSCOPAN (BUSCOPAN) [Concomitant]
  6. CO-CODAMOL (PANADEINE CO) [Concomitant]
  7. LEVOTHYROXINE SODIUM [Concomitant]

REACTIONS (5)
  - ACUTE HEPATIC FAILURE [None]
  - COAGULOPATHY [None]
  - ENCEPHALOPATHY [None]
  - GASTROINTESTINAL HAEMORRHAGE [None]
  - RENAL IMPAIRMENT [None]
